FAERS Safety Report 10590227 (Version 7)
Quarter: 2015Q3

REPORT INFORMATION
  Report Type: Spontaneous
  Country: US (occurrence: US)
  Receive Date: 20141118
  Receipt Date: 20150714
  Transmission Date: 20151125
  Serious: Yes (Hospitalization, Other)
  Sender: FDA-Public Use
  Company Number: US-PFIZER INC-2014315114

PATIENT
  Age: 67 Year
  Sex: Female
  Weight: 73 kg

DRUGS (22)
  1. HYDROCODONE BITARTRATE AND ACETAMINOPHEN [Concomitant]
     Active Substance: ACETAMINOPHEN\HYDROCODONE BITARTRATE
     Indication: PAIN
     Dosage: UNK
     Dates: start: 2014
  2. NIFEDIPINE. [Concomitant]
     Active Substance: NIFEDIPINE
     Dosage: UNK
     Dates: start: 2008
  3. FISH OIL [Concomitant]
     Active Substance: FISH OIL
     Dosage: UNK
     Dates: start: 2014, end: 201406
  4. CITRUCEL [Concomitant]
     Active Substance: METHYLCELLULOSE (4000 MPA.S)
     Dosage: UNK, AS NEEDED
     Dates: start: 2013
  5. NIFEDIPINE. [Concomitant]
     Active Substance: NIFEDIPINE
     Indication: BLOOD PRESSURE MEASUREMENT
     Dosage: UNK
     Dates: start: 201501
  6. ZEGERID [Concomitant]
     Active Substance: OMEPRAZOLE\SODIUM BICARBONATE
     Indication: GASTROOESOPHAGEAL REFLUX DISEASE
     Dosage: UNK, 1X/DAY
     Dates: start: 20150320, end: 201504
  7. VITAMIN D [Concomitant]
     Active Substance: CHOLECALCIFEROL
     Dosage: UNK
     Dates: start: 2013
  8. FISH OIL [Concomitant]
     Active Substance: FISH OIL
     Dosage: UNK
     Dates: start: 2014, end: 2015
  9. CITRUCEL [Concomitant]
     Active Substance: METHYLCELLULOSE (4000 MPA.S)
     Dosage: UNK
     Dates: start: 20150101
  10. LEVOTHYROXINE. [Concomitant]
     Active Substance: LEVOTHYROXINE
     Dosage: UNK
     Dates: start: 2015
  11. SUTENT [Suspect]
     Active Substance: SUNITINIB MALATE
     Indication: METASTATIC RENAL CELL CARCINOMA
     Dosage: 50 MG, CYCLIC (28 DAYS ON, 14 DAYS OFF)
     Dates: start: 20141022, end: 20141230
  12. SUTENT [Suspect]
     Active Substance: SUNITINIB MALATE
     Dosage: 37.5 MG, CYCLIC (28 ON,14 OFF) 1 DAY
     Dates: start: 20150115, end: 20150611
  13. ZYRTEC [Concomitant]
     Active Substance: CETIRIZINE HYDROCHLORIDE
     Dosage: UNK
     Dates: start: 2014
  14. LISINOPRIL. [Concomitant]
     Active Substance: LISINOPRIL
     Dosage: UNK
     Dates: start: 20150401, end: 20150407
  15. NIFEDIPINE. [Concomitant]
     Active Substance: NIFEDIPINE
     Dosage: 30 MG, 2X/DAY
     Dates: start: 20150115, end: 20150618
  16. VITAMIN D [Concomitant]
     Active Substance: CHOLECALCIFEROL
     Dosage: UNK
     Dates: start: 2014
  17. ALBUTEROL INHALER [Concomitant]
     Active Substance: ALBUTEROL
     Dosage: UNK
     Dates: start: 2010
  18. LEVOTHYROXINE. [Concomitant]
     Active Substance: LEVOTHYROXINE
     Indication: THYROID DISORDER
     Dosage: 75 MG, DAILY
     Dates: start: 201412
  19. XGEVA [Concomitant]
     Active Substance: DENOSUMAB
     Dosage: UNK
     Dates: start: 201504
  20. ZYRTEC [Concomitant]
     Active Substance: CETIRIZINE HYDROCHLORIDE
     Dosage: UNK, AS NEEDED
     Dates: start: 2013
  21. ALBUTEROL INHALER [Concomitant]
     Active Substance: ALBUTEROL
     Dosage: UNK, AS NEEDED
     Dates: start: 2013
  22. HYDROCODONE BITARTRATE AND ACETAMINOPHEN [Concomitant]
     Active Substance: ACETAMINOPHEN\HYDROCODONE BITARTRATE
     Dosage: 5-325 TAB AS NEEDED
     Dates: start: 201501

REACTIONS (21)
  - Dysphagia [Not Recovered/Not Resolved]
  - Dysgeusia [Recovered/Resolved]
  - Back pain [Not Recovered/Not Resolved]
  - Swelling face [Recovered/Resolved]
  - Bronchitis chronic [Not Recovered/Not Resolved]
  - Dizziness [Recovered/Resolved]
  - Gastrooesophageal reflux disease [Not Recovered/Not Resolved]
  - Arthralgia [Not Recovered/Not Resolved]
  - Arthritis [Not Recovered/Not Resolved]
  - Headache [Not Recovered/Not Resolved]
  - Fatigue [Unknown]
  - Contusion [Not Recovered/Not Resolved]
  - Pain [Not Recovered/Not Resolved]
  - Oral mucosal blistering [Recovered/Resolved]
  - Memory impairment [Not Recovered/Not Resolved]
  - Blood pressure increased [Not Recovered/Not Resolved]
  - Oral pain [Recovered/Resolved]
  - Dry skin [Not Recovered/Not Resolved]
  - Diarrhoea [Not Recovered/Not Resolved]
  - Pain in extremity [Recovered/Resolved]
  - Hypokinesia [Not Recovered/Not Resolved]

NARRATIVE: CASE EVENT DATE: 20141022
